FAERS Safety Report 9897341 (Version 3)
Quarter: 2014Q4

REPORT INFORMATION
  Report Type: Spontaneous
  Country: US (occurrence: US)
  Receive Date: 20140214
  Receipt Date: 20141121
  Transmission Date: 20150529
  Serious: Yes (Hospitalization)
  Sender: FDA-Public Use
  Company Number: US-BAYER-2014-023498

PATIENT
  Age: 33 Year
  Sex: Female
  Weight: 62 kg

DRUGS (4)
  1. RANITIDINE [Concomitant]
     Active Substance: RANITIDINE\RANITIDINE HYDROCHLORIDE
     Dosage: UNK
     Route: 048
     Dates: start: 20130626
  2. MIRENA [Suspect]
     Active Substance: LEVONORGESTREL
     Indication: CONTRACEPTION
     Dosage: 20 MCG/24HR, CONT
     Dates: start: 20110117, end: 20130626
  3. ADVIL [Concomitant]
     Active Substance: IBUPROFEN
     Dosage: UNK
     Route: 048
     Dates: start: 20130626
  4. VITAMIN D [Concomitant]
     Active Substance: CHOLECALCIFEROL
     Dosage: UNK,1 DAILY.
     Route: 048
     Dates: start: 20130626

REACTIONS (13)
  - Medical device pain [None]
  - Emotional distress [None]
  - Pain in extremity [None]
  - Hypoaesthesia [None]
  - Device failure [None]
  - Pain [None]
  - Embedded device [None]
  - Abdominal pain [None]
  - Depression [None]
  - Anxiety [None]
  - Scar [None]
  - Dyspareunia [None]
  - Injury [None]

NARRATIVE: CASE EVENT DATE: 201306
